FAERS Safety Report 4634694-2 (Version None)
Quarter: 2005Q2

REPORT INFORMATION
  Report Type: 
  Country: None (occurrence: None)
  Receive Date: 20050412
  Receipt Date: 20050331
  Transmission Date: 20051028
  Serious: Yes (Other)
  Sender: FDA-Public Use
  Company Number: HQWYE644504APR05

PATIENT
  Sex: Female

DRUGS (1)
  1. PREMPRO [Suspect]
     Dosage: 1 TABLET 1X PER 1 DAY, ORAL/SEVERAL MONTHS
     Route: 048

REACTIONS (2)
  - INFARCTION [None]
  - VISUAL FIELD DEFECT [None]
